FAERS Safety Report 17956792 (Version 4)
Quarter: 2020Q3

REPORT INFORMATION
  Report Type: Spontaneous
  Country: US (occurrence: US)
  Receive Date: 20200629
  Receipt Date: 20200819
  Transmission Date: 20201103
  Serious: Yes (Other)
  Sender: FDA-Public Use
  Company Number: US-PFIZER INC-2020248806

PATIENT
  Age: 82 Year
  Sex: Female

DRUGS (2)
  1. LIDOCAINE. [Concomitant]
     Active Substance: LIDOCAINE
     Indication: PAIN
     Dosage: UNK
  2. IBRANCE [Suspect]
     Active Substance: PALBOCICLIB
     Indication: BREAST CANCER FEMALE
     Dosage: 100 MG, CYCLIC (DAILY FOR 21 DAYS/DAILY FOR 3 WEEKS, OFF FOR 1 WEEK)
     Route: 048
     Dates: start: 20200516

REACTIONS (7)
  - Decreased appetite [Unknown]
  - Tumour marker increased [Unknown]
  - Intestinal obstruction [Unknown]
  - Gastrointestinal motility disorder [Unknown]
  - Fatigue [Unknown]
  - Weight decreased [Unknown]
  - White blood cell count decreased [Unknown]
